FAERS Safety Report 25794414 (Version 2)
Quarter: 2025Q3

REPORT INFORMATION
  Report Type: Spontaneous
  Country: EU (occurrence: EU)
  Receive Date: 20250912
  Receipt Date: 20250913
  Transmission Date: 20251021
  Serious: Yes (Other)
  Sender: ACCORD
  Company Number: None

PATIENT
  Age: 71 Year
  Sex: Male
  Weight: 78 kg

DRUGS (10)
  1. CARBOPLATIN [Suspect]
     Active Substance: CARBOPLATIN
     Indication: Bronchial carcinoma
     Dates: start: 20250410, end: 20250603
  2. GEMCITABINE [Suspect]
     Active Substance: GEMCITABINE
     Indication: Bronchial carcinoma
     Dates: start: 20250410, end: 20250617
  3. CEMIPLIMAB [Suspect]
     Active Substance: CEMIPLIMAB
     Indication: Bronchial carcinoma
     Dates: start: 20250410, end: 20250603
  4. ASPIRIN [Concomitant]
     Active Substance: ASPIRIN
     Indication: Cerebrovascular accident
     Dosage: DAILY DOSE: 100 MG EVERY 1 DAY
     Dates: start: 2019
  5. ATORVASTATIN [Concomitant]
     Active Substance: ATORVASTATIN
     Indication: Cerebrovascular accident
     Dosage: DAILY DOSE: 40 MG EVERY 1 DAY
     Dates: start: 2019
  6. ALLOPURINOL [Concomitant]
     Active Substance: ALLOPURINOL
     Indication: Hyperuricaemia
     Dosage: DAILY DOSE: 100 MG EVERY 1 DAY
     Dates: start: 2024
  7. LISINOPRIL [Concomitant]
     Active Substance: LISINOPRIL
     Indication: Hypertension
     Dosage: DAILY DOSE: 20 MG EVERY 1 DAY
     Dates: start: 2019
  8. NALOXONE HYDROCHLORIDE\TILIDINE HYDROCHLORIDE [Concomitant]
     Active Substance: NALOXONE HYDROCHLORIDE\TILIDINE HYDROCHLORIDE
     Indication: Pain
     Dates: start: 202503
  9. METAMIZOLE [Concomitant]
     Active Substance: METAMIZOLE
     Indication: Pain
     Dosage: DAILY DOSE: 4000 MG EVERY 1 DAY
     Dates: start: 202503
  10. PANTOZOL [Concomitant]
     Active Substance: PANTOPRAZOLE SODIUM
     Indication: Prophylaxis
     Dosage: DAILY DOSE: 40 MG EVERY 1 DAY

REACTIONS (2)
  - Drug-induced liver injury [Not Recovered/Not Resolved]
  - Transaminases increased [Not Recovered/Not Resolved]

NARRATIVE: CASE EVENT DATE: 20250707
